FAERS Safety Report 14169228 (Version 1)
Quarter: 2017Q4

REPORT INFORMATION
  Report Type: Spontaneous
  Country: US (occurrence: US)
  Receive Date: 20171107
  Receipt Date: 20171107
  Transmission Date: 20180321
  Serious: No
  Sender: FDA-Public Use
  Company Number: US-ACTELION-A-US2017-162078

PATIENT
  Age: 72 Year
  Sex: Female

DRUGS (1)
  1. OPSUMIT [Suspect]
     Active Substance: MACITENTAN
     Indication: PULMONARY ARTERIAL HYPERTENSION
     Dosage: 10 MG, UNK
     Route: 048
     Dates: start: 20140422

REACTIONS (5)
  - Gait disturbance [Unknown]
  - Disease progression [Unknown]
  - Oxygen therapy [Unknown]
  - Dyspnoea exertional [Unknown]
  - Loss of personal independence in daily activities [Unknown]
